FAERS Safety Report 26180672 (Version 1)
Quarter: 2025Q4

REPORT INFORMATION
  Report Type: Spontaneous
  Country: GB (occurrence: GB)
  Receive Date: 20251219
  Receipt Date: 20251219
  Transmission Date: 20260118
  Serious: Yes (Hospitalization, Other)
  Sender: PFIZER
  Company Number: None

PATIENT
  Age: 25 Year

DRUGS (10)
  1. KETAMINE HYDROCHLORIDE [Suspect]
     Active Substance: KETAMINE HYDROCHLORIDE
     Dosage: UNK
     Dates: start: 20251204
  2. THIAMINE [Concomitant]
     Active Substance: THIAMINE
     Dosage: ONE TO BE TAKEN THREE TIMES A DAY 1MANE 1NOON 1NOCTE
  3. AMITRIPTYLINE [Concomitant]
     Active Substance: AMITRIPTYLINE
     Dosage: TWO TO BE TAKEN AT NIGHT 2NOCTE
  4. MIRTAZAPINE [Concomitant]
     Active Substance: MIRTAZAPINE
     Dosage: ONE TO BE TAKEN AT NIGHT 1NOCTE
  5. MIRABEGRON [Concomitant]
     Active Substance: MIRABEGRON
     Dosage: ONE TO BE TAKEN EACH DAY 1MANE
  6. LANSOPRAZOLE [Concomitant]
     Active Substance: LANSOPRAZOLE
     Dosage: ONE TO BE TAKEN EACH MORNING 1MANE
  7. NEFOPAM [Concomitant]
     Active Substance: NEFOPAM
     Dosage: TAKE ONE TABLET UP TO THREE TIMES A DAY 1MANE 1NOON 1NOCTE
  8. ETORICOXIB [Concomitant]
     Active Substance: ETORICOXIB
     Dosage: TAKE ONE TABLET TWICE A DAY -1MANE 1NOCTE -NOT HAD IN OVER A WEEK
  9. BUTYLSCOPOLAMINE BROMIDE [Concomitant]
     Active Substance: BUTYLSCOPOLAMINE BROMIDE
     Indication: Bladder spasm
     Dosage: TAKE ONE TABLET THREE TIMES A DAY WHEN REQUIRED (BLADDER SPASMS) -TAKES 1-2 MANE, NOON, NOCTE
  10. SOLIFENACIN [Concomitant]
     Active Substance: SOLIFENACIN
     Dosage: ONE TO BE TAKEN EACH DAY-DOESN^T TAKE

REACTIONS (2)
  - Urinary tract disorder [Unknown]
  - Bladder pain [Unknown]
